FAERS Safety Report 9222233 (Version 1)
Quarter: 2013Q2

REPORT INFORMATION
  Report Type: Spontaneous
  Country: US (occurrence: None)
  Receive Date: 20130408
  Receipt Date: 20130408
  Transmission Date: 20140414
  Serious: Yes (Death)
  Sender: FDA-Public Use
  Company Number: B0880951A

PATIENT
  Sex: 0

DRUGS (8)
  1. MELPHALAN [Suspect]
     Indication: NEUROBLASTOMA
     Route: 042
  2. BUSULPHAN [Suspect]
     Indication: NEUROBLASTOMA
     Route: 042
  3. IOBENGUANE [Suspect]
     Indication: NEUROBLASTOMA
     Route: 042
  4. POTASSIUM PERCHLORATE [Suspect]
     Indication: PROPHYLAXIS
  5. POTASSIUM IODIDE [Suspect]
     Indication: PROPHYLAXIS
  6. FILGRASTIM [Suspect]
     Indication: NEUROBLASTOMA
     Dosage: 5 MCG/KG/PER DAY/INTRAVENOUS
  7. URSODEOXYCHOLIC ACID [Suspect]
     Indication: PROPHYLAXIS
  8. RADIOTHERAPY [Suspect]
     Indication: NEUROBLASTOMA
     Dosage: 2160 GRAY

REACTIONS (7)
  - Venoocclusive liver disease [None]
  - Hyperbilirubinaemia [None]
  - Hepatomegaly [None]
  - Coagulopathy [None]
  - Respiratory failure [None]
  - Capillary permeability increased [None]
  - Condition aggravated [None]
